FAERS Safety Report 5120361-8 (Version None)
Quarter: 2006Q4

REPORT INFORMATION
  Report Type: 
  Country: None (occurrence: None)
  Receive Date: 20061002
  Receipt Date: 20060921
  Transmission Date: 20070319
  Serious: No
  Sender: FDA-Public Use
  Company Number: PT200609005304

PATIENT
  Age: 60 Year
  Sex: Female

DRUGS (3)
  1. OLANZAPINE [Suspect]
     Indication: MAJOR DEPRESSION
     Dosage: 5 MG, DAILY (1/D),
     Dates: start: 20060919
  2. CLOMIPRAMINE HCL [Concomitant]
  3. LORAZEPAM [Concomitant]

REACTIONS (1)
  - PLATELET COUNT DECREASED [None]
